FAERS Safety Report 5886126-4 (Version None)
Quarter: 2008Q3

REPORT INFORMATION
  Report Type: 
  Country: None (occurrence: None)
  Receive Date: 20080917
  Receipt Date: 20080909
  Transmission Date: 20090109
  Serious: Yes (Other)
  Sender: FDA-Public Use
  Company Number: US-BAYER-200813657BCC

PATIENT
  Sex: Female

DRUGS (2)
  1. ASPIRIN [Suspect]
     Indication: DRUG USE FOR UNKNOWN INDICATION
  2. BLOOD PRESSURE MEDICATIONS [Concomitant]

REACTIONS (2)
  - STOMACH DISCOMFORT [None]
  - ULCER [None]
